FAERS Safety Report 4783601-0 (Version None)
Quarter: 2005Q3

REPORT INFORMATION
  Report Type: 
  Country: None (occurrence: None)
  Receive Date: 20050929
  Receipt Date: 20050922
  Transmission Date: 20060218
  Serious: Yes (Death)
  Sender: FDA-Public Use
  Company Number: US-JNJFOC-20040306577

PATIENT
  Sex: Female
  Weight: 163.3 kg

DRUGS (11)
  1. DURAGESIC-100 [Suspect]
     Route: 062
     Dates: start: 20040113, end: 20040213
  2. DURAGESIC-100 [Suspect]
     Route: 062
     Dates: start: 20040113, end: 20040213
  3. ZANAFLEX [Concomitant]
     Dosage: 4 MG, 2 IN 1 DAY (DURING THE DAY), AND 12 MG AT BEDTIME
  4. VICODIN ES [Concomitant]
  5. VICODIN ES [Concomitant]
  6. LIDODERM [Concomitant]
  7. NEURONTIN [Concomitant]
  8. PREMARIN [Concomitant]
  9. ZYRTEC [Concomitant]
  10. CETIRIZINE HCL [Concomitant]
  11. DYCYCLOMINE [Concomitant]

REACTIONS (40)
  - ABDOMINAL PAIN [None]
  - ANXIETY [None]
  - APPLICATION SITE IRRITATION [None]
  - APPLICATION SITE PRURITUS [None]
  - APPLICATION SITE REACTION [None]
  - BACK PAIN [None]
  - BALANCE DISORDER [None]
  - BLOOD ALKALINE PHOSPHATASE INCREASED [None]
  - BLOOD AMYLASE DECREASED [None]
  - BLOOD CHLORIDE DECREASED [None]
  - BLOOD PRESSURE IMMEASURABLE [None]
  - BLOOD PRESSURE SYSTOLIC INCREASED [None]
  - BODY TEMPERATURE INCREASED [None]
  - CARDIO-RESPIRATORY ARREST [None]
  - CARDIOMEGALY [None]
  - CONSTIPATION [None]
  - COUGH [None]
  - CYANOSIS [None]
  - DEPRESSED LEVEL OF CONSCIOUSNESS [None]
  - DIARRHOEA [None]
  - DIZZINESS [None]
  - DRUG TOXICITY [None]
  - FATIGUE [None]
  - FLANK PAIN [None]
  - FLATULENCE [None]
  - HYPERHIDROSIS [None]
  - INTERVERTEBRAL DISC PROTRUSION [None]
  - LIPASE INCREASED [None]
  - MALAISE [None]
  - MICTURITION URGENCY [None]
  - NAUSEA [None]
  - PAIN [None]
  - PHARMACEUTICAL PRODUCT COMPLAINT [None]
  - PLATELET COUNT DECREASED [None]
  - PULSE ABSENT [None]
  - RESPIRATORY ARREST [None]
  - RESPIRATORY RATE INCREASED [None]
  - TEMPERATURE INTOLERANCE [None]
  - VENTRICULAR HYPERTROPHY [None]
  - VOMITING [None]
